FAERS Safety Report 8157610-8 (Version None)
Quarter: 2012Q1

REPORT INFORMATION
  Report Type: 
  Country: None (occurrence: None)
  Receive Date: 20120222
  Receipt Date: 20120109
  Transmission Date: 20120608
  Serious: No
  Sender: FDA-Public Use
  Company Number: US-ASTRAZENECA-2011SE03372

PATIENT
  Age: 83 Year
  Sex: Female

DRUGS (2)
  1. ATENOLOL [Suspect]
     Route: 065
  2. ZESTRIL [Suspect]
     Route: 048

REACTIONS (3)
  - HEADACHE [None]
  - DYSPEPSIA [None]
  - NAUSEA [None]
